FAERS Safety Report 5606806-5 (Version None)
Quarter: 2008Q1

REPORT INFORMATION
  Report Type: 
  Country: None (occurrence: None)
  Receive Date: 20080129
  Receipt Date: 20080124
  Transmission Date: 20080703
  Serious: Yes (Hospitalization, Other)
  Sender: FDA-Public Use
  Company Number: US-ASTRAZENECA-2006UW11874

PATIENT
  Age: 22893 Day
  Sex: Female
  Weight: 91.8 kg

DRUGS (38)
  1. SEROQUEL [Suspect]
     Indication: SCHIZOPHRENIA
     Route: 048
     Dates: start: 20060701, end: 20061101
  2. SEROQUEL [Suspect]
     Indication: BIPOLAR DISORDER
     Route: 048
     Dates: start: 20060701, end: 20061101
  3. SEROQUEL [Suspect]
     Indication: DEPRESSION
     Route: 048
     Dates: start: 20060701, end: 20061101
  4. SEROQUEL [Suspect]
     Route: 048
     Dates: start: 20050101
  5. SEROQUEL [Suspect]
     Route: 048
     Dates: start: 20050101
  6. SEROQUEL [Suspect]
     Route: 048
     Dates: start: 20050101
  7. SEROQUEL [Suspect]
     Route: 048
     Dates: start: 20050817, end: 20061101
  8. SEROQUEL [Suspect]
     Route: 048
     Dates: start: 20050817, end: 20061101
  9. SEROQUEL [Suspect]
     Route: 048
     Dates: start: 20050817, end: 20061101
  10. ZYPREXA [Suspect]
     Route: 048
     Dates: start: 20050101
  11. ZYPREXA [Suspect]
     Route: 048
     Dates: start: 19991203, end: 20001216
  12. ZYPREXA [Suspect]
     Route: 048
     Dates: start: 20000510, end: 20010524
  13. ZYPREXA [Suspect]
     Route: 048
     Dates: start: 20000803, end: 20010817
  14. ZYPREXA [Suspect]
     Route: 048
     Dates: start: 19991103, end: 19991116
  15. ZYPREXA [Suspect]
     Route: 048
     Dates: start: 19991008, end: 20001021
  16. SOLIAN [Concomitant]
     Dates: start: 20061218
  17. TRAZODONE HCL [Concomitant]
     Route: 048
     Dates: start: 20050101
  18. TRAZODONE HCL [Concomitant]
     Route: 048
     Dates: start: 20000803, end: 20010817
  19. TRAZODONE HCL [Concomitant]
     Route: 048
     Dates: start: 20000510, end: 20010524
  20. TRAZODONE HCL [Concomitant]
     Dates: start: 20061218
  21. ZOLOFT [Concomitant]
     Dates: start: 20060101, end: 20070101
  22. GLUCOPHAGE [Concomitant]
  23. NORTRIPTYLINE [Concomitant]
     Route: 048
     Dates: start: 20000803, end: 20010817
  24. METOCLOPRAMIDE [Concomitant]
     Route: 042
     Dates: start: 20000725, end: 20000727
  25. CONJUGATED ESTROGENS [Concomitant]
     Route: 048
     Dates: start: 19991203, end: 19991205
  26. CLONAZEPAM [Concomitant]
     Route: 048
     Dates: start: 19991203, end: 19991222
  27. FLUOXETINE [Concomitant]
     Route: 048
     Dates: start: 19991103, end: 20001116
  28. FUROSEMIDE [Concomitant]
     Route: 048
     Dates: start: 19990714, end: 20000727
  29. PLAVIX [Concomitant]
     Route: 048
     Dates: start: 20051001
  30. SYNTHROID [Concomitant]
  31. PRINIVIL [Concomitant]
  32. FLAGYL [Concomitant]
     Dates: end: 20051023
  33. CIPRO [Concomitant]
     Dates: end: 20051023
  34. PROTONIX [Concomitant]
  35. ZOCOR [Concomitant]
  36. LORTAB [Concomitant]
  37. RISPERDAL [Concomitant]
     Dates: start: 20050101
  38. ZYPREXA [Concomitant]
     Dates: start: 19991001, end: 20010801

REACTIONS (6)
  - ASTHENIA [None]
  - CEREBROVASCULAR ACCIDENT [None]
  - DIABETES MELLITUS [None]
  - MYOCARDIAL INFARCTION [None]
  - PAIN [None]
  - PAIN IN EXTREMITY [None]
